FAERS Safety Report 4681955-7 (Version None)
Quarter: 2005Q2

REPORT INFORMATION
  Report Type: 
  Country: None (occurrence: None)
  Receive Date: 20050602
  Receipt Date: 20050520
  Transmission Date: 20051028
  Serious: Yes (Hospitalization, Other)
  Sender: FDA-Public Use
  Company Number: HQWYE828620MAY05

PATIENT
  Age: 64 Year
  Sex: Female

DRUGS (7)
  1. PANTOPRAZOLE SODIUM [Suspect]
     Dosage: 40 MG, 1 TIME (S), SOME DF ORAL
     Route: 048
     Dates: start: 20041021, end: 20041021
  2. KETOPROFEN [Suspect]
     Indication: RHEUMATOID ARTHRITIS
     Dosage: SOME TIME (S) SOME DF ORAL
     Route: 048
     Dates: start: 20041021, end: 20041122
  3. SULFASALAZINE [Suspect]
     Indication: RHEUMATOID ARTHRITIS
     Dosage: 500 MG 4X PER 1 DAY ORAL
     Route: 048
     Dates: start: 20041021, end: 20041122
  4. TRAMADOL HCL [Suspect]
     Indication: RHEUMATOID ARTHRITIS
     Dosage: SOME TIME (S), SOME DF ORAL
     Route: 048
     Dates: start: 20041021, end: 20041122
  5. CEFUROXIME AXETIL [Concomitant]
  6. SYMBICORT (BUDESONIDE/FORMOTEROL FUMARATE) [Concomitant]
  7. EXOMUC (ACETYLCYSTEINE) [Concomitant]

REACTIONS (8)
  - ANAEMIA [None]
  - ANTINUCLEAR ANTIBODY POSITIVE [None]
  - HEPATITIS [None]
  - MYALGIA [None]
  - PLATELET COUNT DECREASED [None]
  - RASH PAPULAR [None]
  - RHINORRHOEA [None]
  - SINUS HEADACHE [None]
